FAERS Safety Report 4806959-2 (Version None)
Quarter: 2005Q4

REPORT INFORMATION
  Report Type: 
  Country: None (occurrence: None)
  Receive Date: 20051019
  Receipt Date: 20051006
  Transmission Date: 20060501
  Serious: Yes (Other)
  Sender: FDA-Public Use
  Company Number: DE_051017119

PATIENT
  Age: 82 Year
  Sex: Female
  Weight: 85 kg

DRUGS (4)
  1. YENTREVE (DULOXETINE HYDROCHLORIDE) [Suspect]
     Indication: STRESS INCONTINENCE
     Dosage: 40 MG DAY
     Dates: start: 20050405, end: 20050425
  2. CALCIMAGON (CALCIUM CARBONATE) [Concomitant]
  3. COAPROVEL [Concomitant]
  4. VERAMEX (VERAPAMIL HYDROCHLORIDE) [Concomitant]

REACTIONS (4)
  - EXTRASYSTOLES [None]
  - NAUSEA [None]
  - PALPITATIONS [None]
  - TACHYCARDIA [None]
